FAERS Safety Report 8802055 (Version 2)
Quarter: 2015Q1

REPORT INFORMATION
  Report Type: Report from Study
  Country: US (occurrence: US)
  Receive Date: 20120921
  Receipt Date: 20150304
  Transmission Date: 20150721
  Serious: Yes (Death)
  Sender: FDA-Public Use
  Company Number: US-ROCHE-1093996

PATIENT
  Sex: Male
  Weight: 71.28 kg

DRUGS (17)
  1. ARANESP [Concomitant]
     Active Substance: DARBEPOETIN ALFA
     Route: 058
  2. LEUCOVORIN [Concomitant]
     Active Substance: LEUCOVORIN
     Route: 042
  3. BENADRYL [Concomitant]
     Active Substance: DIPHENHYDRAMINE HYDROCHLORIDE
     Route: 042
  4. FLUOROURACIL. [Concomitant]
     Active Substance: FLUOROURACIL
     Route: 042
  5. DUONEB [Concomitant]
     Active Substance: ALBUTEROL SULFATE\IPRATROPIUM BROMIDE
     Route: 042
  6. BENADRYL [Concomitant]
     Active Substance: DIPHENHYDRAMINE HYDROCHLORIDE
     Route: 042
  7. ALOXI [Concomitant]
     Active Substance: PALONOSETRON HYDROCHLORIDE
     Route: 042
  8. MANNITOL. [Concomitant]
     Active Substance: MANNITOL
     Route: 042
  9. CISPLATIN. [Concomitant]
     Active Substance: CISPLATIN
     Route: 042
  10. POTASSIUM CHLORIDE. [Concomitant]
     Active Substance: POTASSIUM CHLORIDE
     Route: 065
  11. HEPARIN [Concomitant]
     Active Substance: HEPARIN SODIUM
     Route: 065
  12. ZOFRAN [Concomitant]
     Active Substance: ONDANSETRON HYDROCHLORIDE
     Route: 042
  13. TAXOL [Concomitant]
     Active Substance: PACLITAXEL
     Route: 042
  14. ALLEGRA [Concomitant]
     Active Substance: FEXOFENADINE HYDROCHLORIDE
     Route: 048
  15. ZANTAC [Concomitant]
     Active Substance: RANITIDINE HYDROCHLORIDE
     Route: 048
  16. DECADRON [Concomitant]
     Active Substance: DEXAMETHASONE
     Route: 042
  17. AVASTIN [Suspect]
     Active Substance: BEVACIZUMAB
     Indication: OESOPHAGEAL CARCINOMA
     Route: 042
     Dates: start: 20061229

REACTIONS (3)
  - Back pain [Recovering/Resolving]
  - Death [Fatal]
  - Off label use [Unknown]
